FAERS Safety Report 6429114-1 (Version None)
Quarter: 2009Q4

REPORT INFORMATION
  Report Type: 
  Country: None (occurrence: None)
  Receive Date: 20091030
  Receipt Date: 20091028
  Transmission Date: 20100525
  Serious: Yes (Disabling)
  Sender: FDA-Public Use
  Company Number: SP02599

PATIENT
  Age: 78 Year
  Sex: Female
  Weight: 81.6475 kg

DRUGS (3)
  1. OSMOPREP [Suspect]
     Indication: BOWEL PREPARATION
     Dosage: 14 TABLETS, ORAL
     Route: 048
     Dates: start: 20090929, end: 20090929
  2. BENADRYL [Concomitant]
  3. TYLENOL (CAPLET) [Concomitant]

REACTIONS (7)
  - ERYTHEMA [None]
  - EYE PRURITUS [None]
  - NAUSEA [None]
  - PARAESTHESIA [None]
  - SKIN EXFOLIATION [None]
  - TINNITUS [None]
  - VOMITING [None]
